FAERS Safety Report 10503852 (Version 2)
Quarter: 2014Q4

REPORT INFORMATION
  Report Type: Spontaneous
  Country: US (occurrence: US)
  Receive Date: 20141008
  Receipt Date: 20141124
  Transmission Date: 20150528
  Serious: Yes (Hospitalization)
  Sender: FDA-Public Use
  Company Number: US-PFIZER INC-2014274874

PATIENT
  Age: 79 Year
  Sex: Female

DRUGS (5)
  1. XANAX [Suspect]
     Active Substance: ALPRAZOLAM
     Indication: GENERALISED ANXIETY DISORDER
     Dosage: 25MG- 5 TABLETS EVERY 4 HOURS AS NEEDED
     Dates: start: 20140920
  2. ALBUTEROL. [Concomitant]
     Active Substance: ALBUTEROL
     Dosage: 90 ?G, AS NEEDED  (90MCG INHALER DAILY)
     Dates: start: 20010509
  3. LOMOTIL [Concomitant]
     Active Substance: ATROPINE SULFATE\DIPHENOXYLATE HYDROCHLORIDE
     Dosage: 25/0.025 MG AS NEEDED
     Dates: start: 20101109
  4. LANSOPRAZOLE. [Concomitant]
     Active Substance: LANSOPRAZOLE
     Dosage: 15 MG, DAILY
     Dates: start: 20110124
  5. XANAX [Suspect]
     Active Substance: ALPRAZOLAM
     Indication: BLOOD PRESSURE
     Dosage: UNK
     Dates: start: 2001

REACTIONS (6)
  - Nausea [Recovered/Resolved]
  - Product quality issue [Recovered/Resolved]
  - Decreased appetite [Recovered/Resolved]
  - Gastrointestinal disorder [Recovered/Resolved]
  - Immune system disorder [Recovered/Resolved]
  - Weight decreased [Recovered/Resolved]

NARRATIVE: CASE EVENT DATE: 20140920
